FAERS Safety Report 19277938 (Version 2)
Quarter: 2021Q2

REPORT INFORMATION
  Report Type: Report from Study
  Country: None (occurrence: US)
  Receive Date: 20210520
  Receipt Date: 20210525
  Transmission Date: 20210717
  Serious: Yes (Hospitalization, Other)
  Sender: FDA-Public Use
  Company Number: US-ABBVIE-21K-163-3912217-00

PATIENT
  Age: 44 Year
  Sex: Male
  Weight: 76.27 kg

DRUGS (4)
  1. MODERNA COVID?19 VACCINE [Concomitant]
     Active Substance: CX-024414
     Indication: COVID-19 IMMUNISATION
     Dosage: MODERNA?DOSE 1
     Route: 030
     Dates: start: 20210413, end: 20210413
  2. HUMIRA [Suspect]
     Active Substance: ADALIMUMAB
     Indication: CROHN^S DISEASE
     Route: 058
     Dates: start: 2016
  3. HUMIRA [Suspect]
     Active Substance: ADALIMUMAB
     Indication: COLITIS ULCERATIVE
  4. MODERNA COVID?19 VACCINE [Concomitant]
     Active Substance: CX-024414
     Dosage: MODERNA?DOSE 2
     Route: 030
     Dates: start: 202105, end: 202105

REACTIONS (7)
  - Abdominal pain [Recovered/Resolved]
  - Fatigue [Recovering/Resolving]
  - Colitis [Recovering/Resolving]
  - Sinusitis [Recovered/Resolved]
  - White blood cell count increased [Unknown]
  - Pain [Unknown]
  - Gastroenteritis [Recovered/Resolved]

NARRATIVE: CASE EVENT DATE: 202105
